FAERS Safety Report 8522398-5 (Version None)
Quarter: 2012Q3

REPORT INFORMATION
  Report Type: 
  Country: None (occurrence: None)
  Receive Date: 20120719
  Receipt Date: 20120717
  Transmission Date: 20120928
  Serious: Yes (Life-Threatening, Hospitalization, Other)
  Sender: FDA-Public Use
  Company Number: US-ELI_LILLY_AND_COMPANY-US201207005176

PATIENT
  Age: 56 Year
  Sex: Male

DRUGS (1)
  1. BYDUREON [Suspect]
     Dosage: 2 MG, WEEKLY (1/W)
     Route: 058
     Dates: start: 20120201

REACTIONS (3)
  - RENAL MASS [None]
  - WEIGHT DECREASED [None]
  - MYOCARDIAL INFARCTION [None]
